FAERS Safety Report 5968788-6 (Version None)
Quarter: 2008Q4

REPORT INFORMATION
  Report Type: 
  Country: None (occurrence: None)
  Receive Date: 20081121
  Receipt Date: 20081121
  Transmission Date: 20090506
  Serious: Yes (Other)
  Sender: FDA-Public Use
  Company Number: None

PATIENT

DRUGS (1)
  1. PHENYLEPHRINE 100 ML MICROGRAM PER AMIDOSE [Suspect]
     Indication: HYPOTENSION
     Dosage: 100 MICROGRAM X 5 3 MINUTES IV BOLUS
     Route: 040
     Dates: start: 20081118, end: 20081118

REACTIONS (1)
  - DRUG INEFFECTIVE [None]
